FAERS Safety Report 9571581 (Version 1)
Quarter: 2013Q4

REPORT INFORMATION
  Report Type: Report from Study
  Country: FR (occurrence: FR)
  Receive Date: 20131001
  Receipt Date: 20131001
  Transmission Date: 20140711
  Serious: Yes (Other)
  Sender: FDA-Public Use
  Company Number: FR-ROCHE-1282740

PATIENT
  Sex: 0

DRUGS (1)
  1. PEG-INTERFERON ALFA 2A [Suspect]
     Indication: HEPATITIS C
     Dosage: SELF ADMINISTRATION FOR 96 WEEKS
     Route: 058

REACTIONS (1)
  - Leukopenia [Unknown]
